FAERS Safety Report 5631742-8 (Version None)
Quarter: 2008Q1

REPORT INFORMATION
  Report Type: 
  Country: None (occurrence: None)
  Receive Date: 20080220
  Receipt Date: 20080211
  Transmission Date: 20080703
  Serious: Yes (Hospitalization, Other)
  Sender: FDA-Public Use
  Company Number: US-BAYER-200714834NA

PATIENT
  Age: 59 Year
  Sex: Female

DRUGS (1)
  1. BETASERON [Suspect]
     Indication: MULTIPLE SCLEROSIS
     Dosage: TOTAL DAILY DOSE: 8 MIU
     Route: 058
     Dates: start: 20051111

REACTIONS (14)
  - CELLULITIS [None]
  - CHOLELITHIASIS [None]
  - DYSKINESIA [None]
  - GAIT DISTURBANCE [None]
  - INFLAMMATION [None]
  - LOWER EXTREMITY MASS [None]
  - MOTOR DYSFUNCTION [None]
  - PAIN IN EXTREMITY [None]
  - POSTOPERATIVE WOUND COMPLICATION [None]
  - PYREXIA [None]
  - RED BLOOD CELL COUNT DECREASED [None]
  - RHEUMATOID NODULE [None]
  - VASCULITIS [None]
  - WOUND DEHISCENCE [None]
